FAERS Safety Report 18271642 (Version 1)
Quarter: 2020Q3

REPORT INFORMATION
  Report Type: Spontaneous
  Country: GB (occurrence: GB)
  Receive Date: 20200916
  Receipt Date: 20200916
  Transmission Date: 20201103
  Serious: Yes (Other)
  Sender: FDA-Public Use
  Company Number: GB-TEVA-2020-GB-1826765

PATIENT
  Age: 73 Year
  Sex: Female
  Weight: 67.12 kg

DRUGS (2)
  1. LEVOTHYROXINE. [Concomitant]
     Active Substance: LEVOTHYROXINE
  2. NITROFURANTOIN. [Suspect]
     Active Substance: NITROFURANTOIN
     Indication: URINARY TRACT INFECTION
     Dosage: 100 MG
     Route: 048
     Dates: start: 20200804, end: 20200810

REACTIONS (2)
  - Rash [Not Recovered/Not Resolved]
  - Skin irritation [Unknown]

NARRATIVE: CASE EVENT DATE: 20200804
